FAERS Safety Report 18981835 (Version 1)
Quarter: 2021Q1

REPORT INFORMATION
  Report Type: Spontaneous
  Country: US (occurrence: US)
  Receive Date: 20210308
  Receipt Date: 20210308
  Transmission Date: 20210420
  Serious: Yes (Other)
  Sender: FDA-Public Use
  Company Number: NVSC2021US051808

PATIENT
  Age: 75 Year
  Sex: Male

DRUGS (8)
  1. GABAPENTIN. [Suspect]
     Active Substance: GABAPENTIN
     Indication: NEURALGIA
     Dosage: UNK
     Route: 065
  2. FLUDROCORTISONE [Suspect]
     Active Substance: FLUDROCORTISONE
     Indication: GLOSSOPHARYNGEAL NEURALGIA
     Dosage: UNK
     Route: 065
  3. CARBAMAZEPINE. [Suspect]
     Active Substance: CARBAMAZEPINE
     Indication: GLOSSOPHARYNGEAL NEURALGIA
     Dosage: UNK
     Route: 065
  4. DROXIDOPA [Suspect]
     Active Substance: DROXIDOPA
     Indication: GLOSSOPHARYNGEAL NEURALGIA
     Dosage: UNK
     Route: 065
  5. MEXILETINE [Suspect]
     Active Substance: MEXILETINE
     Indication: GLOSSOPHARYNGEAL NEURALGIA
     Dosage: UNK
     Route: 065
  6. PYRIDOSTIGMINE [Suspect]
     Active Substance: PYRIDOSTIGMINE
     Indication: GLOSSOPHARYNGEAL NEURALGIA
     Dosage: UNK
     Route: 065
  7. THERMOTABS [DIETARY SUPPLEMENT] [Suspect]
     Active Substance: DIETARY SUPPLEMENT
     Indication: GLOSSOPHARYNGEAL NEURALGIA
     Dosage: UNK
     Route: 065
  8. PSEUDOEPHEDRINE. [Suspect]
     Active Substance: PSEUDOEPHEDRINE HYDROCHLORIDE
     Indication: GLOSSOPHARYNGEAL NEURALGIA
     Dosage: UNK
     Route: 065

REACTIONS (3)
  - Treatment failure [Unknown]
  - Product use in unapproved indication [Unknown]
  - Transaminases increased [Unknown]
